FAERS Safety Report 11522818 (Version 1)
Quarter: 2015Q3

REPORT INFORMATION
  Report Type: Spontaneous
  Country: JP (occurrence: JP)
  Receive Date: 20150918
  Receipt Date: 20150918
  Transmission Date: 20151125
  Serious: Yes (Hospitalization)
  Sender: FDA-Public Use
  Company Number: JP-ARBOR PHARMACEUTICALS, LLC-JP-2015ARB000513

PATIENT
  Age: 63 Year
  Sex: Male

DRUGS (1)
  1. GLIADEL [Suspect]
     Active Substance: CARMUSTINE
     Indication: MALIGNANT GLIOMA
     Dosage: 7.7 MG, 8 TOTAL
     Dates: start: 20150710

REACTIONS (1)
  - Infection [Recovered/Resolved]

NARRATIVE: CASE EVENT DATE: 2015
